FAERS Safety Report 4378641-X (Version None)
Quarter: 2004Q2

REPORT INFORMATION
  Report Type: 
  Country: None (occurrence: None)
  Receive Date: 20040609
  Receipt Date: 20040526
  Transmission Date: 20050107
  Serious: Yes (Death, Hospitalization)
  Sender: FDA-Public Use
  Company Number: HQWYE188203JUN04

PATIENT
  Age: 97 Year
  Sex: Female

DRUGS (5)
  1. VANCOLED (VANCOMYCIN HYDROCHLORIDE, ORAL SUSPENSION) [Suspect]
     Indication: CLOSTRIDIUM COLITIS
     Dosage: 125 MG 4X PER 1 DAY
  2. METRONIDAZOLE [Suspect]
     Indication: CLOSTRIDIUM COLITIS
     Dosage: 400 MG 3X PER 1 DAY
     Route: 048
  3. METRONIDAZOLE [Suspect]
     Indication: CLOSTRIDIUM COLITIS
     Dosage: 400 MG 3X PER 1 DAY
     Route: 048
  4. METRONIDAZOLE [Suspect]
     Indication: CLOSTRIDIUM COLITIS
     Dosage: 400 MG 3X PER 1 DAY
     Route: 048
  5. RIFAMPICIN [Suspect]
     Indication: CLOSTRIDIUM COLITIS
     Dosage: 600 MG 2X PER 1 DAY

REACTIONS (3)
  - BLOOD ALBUMIN DECREASED [None]
  - DRUG INEFFECTIVE [None]
  - WHITE BLOOD CELL COUNT INCREASED [None]
